FAERS Safety Report 13357541 (Version 2)
Quarter: 2017Q2

REPORT INFORMATION
  Report Type: Other
  Country: CA (occurrence: CA)
  Receive Date: 20170322
  Receipt Date: 20170621
  Transmission Date: 20170830
  Serious: Yes (Other)
  Sender: FDA-Public Use
  Company Number: CA-APOTEX-2017AP008225

PATIENT
  Age: 10 Year
  Sex: Male

DRUGS (12)
  1. APO-PREDNISONE [Suspect]
     Active Substance: PREDNISONE
     Indication: PROPHYLAXIS AGAINST TRANSPLANT REJECTION
     Route: 048
  2. APO-NIFED PA [Suspect]
     Active Substance: NIFEDIPINE
     Indication: PRODUCT USED FOR UNKNOWN INDICATION
     Route: 048
  3. CANCIDAS [Suspect]
     Active Substance: CASPOFUNGIN ACETATE
     Indication: PRODUCT USED FOR UNKNOWN INDICATION
     Route: 042
  4. CASPOFUNGIN [Suspect]
     Active Substance: CASPOFUNGIN
     Indication: PRODUCT USED FOR UNKNOWN INDICATION
     Route: 042
  5. APO-MYCOPHENOLATE [Suspect]
     Active Substance: MYCOPHENOLIC ACID
     Indication: PROPHYLAXIS AGAINST TRANSPLANT REJECTION
     Route: 048
  6. PMS AZITHROMYCIN [Suspect]
     Active Substance: AZITHROMYCIN ANHYDROUS
     Indication: PRODUCT USED FOR UNKNOWN INDICATION
     Route: 048
  7. APO-MONTELUKAST [Suspect]
     Active Substance: MONTELUKAST SODIUM
     Indication: PRODUCT USED FOR UNKNOWN INDICATION
     Route: 048
  8. APO-PANTOPRAZOLE [Suspect]
     Active Substance: PANTOPRAZOLE SODIUM
     Route: 048
  9. APO-CIPROFLOX [Suspect]
     Active Substance: CIPROFLOXACIN
     Indication: PRODUCT USED FOR UNKNOWN INDICATION
     Route: 048
  10. APO-VORICONAZOLE [Suspect]
     Active Substance: VORICONAZOLE
     Indication: FUNGAL INFECTION
     Route: 048
  11. TACROLIMUS. [Suspect]
     Active Substance: TACROLIMUS
     Indication: PROPHYLAXIS AGAINST TRANSPLANT REJECTION
     Route: 048
  12. APO-SULFATRIM [Suspect]
     Active Substance: SULFAMETHOXAZOLE\TRIMETHOPRIM
     Indication: PRODUCT USED FOR UNKNOWN INDICATION
     Route: 048

REACTIONS (7)
  - Photodermatosis [Not Recovered/Not Resolved]
  - Drug interaction [Not Recovered/Not Resolved]
  - Squamous cell carcinoma of skin [Not Recovered/Not Resolved]
  - Actinic keratosis [Not Recovered/Not Resolved]
  - Dysplastic naevus [Not Recovered/Not Resolved]
  - Solar lentigo [Not Recovered/Not Resolved]
  - Photosensitivity reaction [Not Recovered/Not Resolved]
